FAERS Safety Report 5282850-5 (Version None)
Quarter: 2007Q1

REPORT INFORMATION
  Report Type: 
  Country: None (occurrence: None)
  Receive Date: 20070329
  Receipt Date: 20070329
  Transmission Date: 20070707
  Serious: Yes (Other)
  Sender: FDA-Public Use
  Company Number: None

PATIENT
  Sex: Female
  Weight: 61.6892 kg

DRUGS (1)
  1. LINDANE [Suspect]

REACTIONS (3)
  - MULTIPLE SCLEROSIS [None]
  - NEURALGIA [None]
  - NEUROLOGICAL SYMPTOM [None]
